FAERS Safety Report 7995221-5 (Version None)
Quarter: 2011Q4

REPORT INFORMATION
  Report Type: 
  Country: None (occurrence: None)
  Receive Date: 20111220
  Receipt Date: 20111211
  Transmission Date: 20120403
  Serious: Yes (Other)
  Sender: FDA-Public Use
  Company Number: US-BAYER-2011-119922

PATIENT
  Sex: Female

DRUGS (3)
  1. ARTHRITIS MEDICATION [Suspect]
     Indication: DYSMENORRHOEA
  2. IBUPROFEN [Suspect]
     Indication: DYSMENORRHOEA
  3. ALEVE (CAPLET) [Suspect]
     Indication: DYSMENORRHOEA
     Route: 048

REACTIONS (1)
  - UNEVALUABLE EVENT [None]
